FAERS Safety Report 9601990 (Version 1)
Quarter: 2013Q4

REPORT INFORMATION
  Report Type: Spontaneous
  Country: US (occurrence: None)
  Receive Date: 20131004
  Receipt Date: 20131004
  Transmission Date: 20140711
  Serious: Yes (Hospitalization)
  Sender: FDA-Public Use
  Company Number: None

PATIENT
  Age: 83 Year
  Sex: Female
  Weight: 78 kg

DRUGS (1)
  1. WARFARIN [Suspect]
     Indication: ATRIAL FIBRILLATION
     Route: 048

REACTIONS (5)
  - Anaemia [None]
  - Asthenia [None]
  - Faeces discoloured [None]
  - Gastrointestinal erosion [None]
  - Polyp [None]
